FAERS Safety Report 7984666-5 (Version None)
Quarter: 2011Q4

REPORT INFORMATION
  Report Type: 
  Country: None (occurrence: None)
  Receive Date: 20111216
  Receipt Date: 20101221
  Transmission Date: 20120403
  Serious: No
  Sender: FDA-Public Use
  Company Number: US-ABBOTT-10P-163-0693114-00

PATIENT
  Sex: Male

DRUGS (2)
  1. HYTRIN [Suspect]
     Indication: PRODUCT USED FOR UNKNOWN INDICATION
  2. UROXATRAL [Suspect]
     Indication: PROSTATOMEGALY
     Route: 048
     Dates: start: 20101001

REACTIONS (2)
  - POLLAKIURIA [None]
  - COUGH [None]
